APPROVED DRUG PRODUCT: CELEXA
Active Ingredient: CITALOPRAM HYDROBROMIDE
Strength: EQ 60MG BASE
Dosage Form/Route: TABLET;ORAL
Application: N020822 | Product #004
Applicant: ABBVIE INC
Approved: Jul 17, 1998 | RLD: No | RS: No | Type: DISCN